FAERS Safety Report 23376398 (Version 3)
Quarter: 2024Q1

REPORT INFORMATION
  Report Type: Spontaneous
  Country: US (occurrence: US)
  Receive Date: 20240108
  Receipt Date: 20240220
  Transmission Date: 20240410
  Serious: Yes (Other)
  Sender: FDA-Public Use
  Company Number: US-BRISTOL-MYERS SQUIBB COMPANY-2023-189467

PATIENT
  Age: 50 Year
  Sex: Female

DRUGS (2)
  1. LENALIDOMIDE [Suspect]
     Active Substance: LENALIDOMIDE
     Indication: Laboratory test abnormal
     Route: 048
  2. LENALIDOMIDE [Suspect]
     Active Substance: LENALIDOMIDE
     Dosage: TAKE 1 CAPSULE BY MOUTH FOR 21 DAYS ON FOLLOWED BY 7 DAYS OFF, EVERY 28 DAY
     Route: 048
     Dates: start: 20231228

REACTIONS (6)
  - Pain [Not Recovered/Not Resolved]
  - Depression [Not Recovered/Not Resolved]
  - Headache [Recovering/Resolving]
  - Off label use [Unknown]
  - Tremor [Recovering/Resolving]
  - Skin exfoliation [Not Recovered/Not Resolved]
